FAERS Safety Report 10502256 (Version 1)
Quarter: 2014Q4

REPORT INFORMATION
  Report Type: Spontaneous
  Country: US (occurrence: None)
  Receive Date: 20141003
  Receipt Date: 20141003
  Transmission Date: 20150528
  Serious: Yes (Death, Hospitalization)
  Sender: FDA-Public Use
  Company Number: US-H14001-14-00892

PATIENT
  Age: 71 Year
  Sex: Male

DRUGS (16)
  1. THALIDOMIDE (THALIDOMIDE) [Suspect]
     Active Substance: THALIDOMIDE
     Indication: PLASMA CELL MYELOMA
     Dates: start: 200609
  2. CARFILZOMIB (CARFILZOMIB) (UNKNOWN) (CARFILZOMIB) [Suspect]
     Active Substance: CARFILZOMIB
     Indication: PLASMA CELL MYELOMA
     Dates: start: 201204
  3. POMALIDOMIDE [Suspect]
     Active Substance: POMALIDOMIDE
     Indication: PLASMA CELL MYELOMA
  4. PREDNISOLONE (PREDNISOLONE) (PREDNISOLONE) [Suspect]
     Active Substance: PREDNISOLONE
     Indication: PLASMA CELL MYELOMA
  5. BORTEZOMIB (BORTEZOMIB) (UNKNOWN) [Suspect]
     Active Substance: BORTEZOMIB
     Indication: PLASMA CELL MYELOMA
     Dates: start: 200803
  6. VINCRISTIN [Suspect]
     Active Substance: VINCRISTINE
     Indication: PLASMA CELL MYELOMA
  7. VELCADE [Suspect]
     Active Substance: BORTEZOMIB
     Indication: PLASMA CELL MYELOMA
     Dates: start: 200609
  8. MESNA (MESNA) [Suspect]
     Active Substance: MESNA
     Indication: PLASMA CELL MYELOMA
  9. ETOPOSIDE (ETOPOSIDE) (ETOPOSIDE) [Suspect]
     Active Substance: ETOPOSIDE
     Indication: PLASMA CELL MYELOMA
     Dates: start: 199704
  10. DOXORUBICIN (DOXORUBICIN) (DOXORUBICIN) [Suspect]
     Active Substance: DOXORUBICIN
     Indication: PLASMA CELL MYELOMA
  11. MELPHALAN (MELPHALAN) [Suspect]
     Active Substance: MELPHALAN
     Indication: PLASMA CELL MYELOMA
     Dates: end: 199712
  12. LENALIDOMIDE (LENALIDOMIDE) (LENALIDOMIDE) [Suspect]
     Active Substance: LENALIDOMIDE
     Indication: PLASMA CELL MYELOMA
     Dates: start: 200803
  13. CYTARABINE (CYTARABINE) (CYTARABINE) [Suspect]
     Active Substance: CYTARABINE
     Indication: PLASMA CELL MYELOMA
  14. DEXAMETHASONE (DEXAMETHASONE SODIUM PHOSPHATE) (UNKNOWN) (DEXAMETHASONE) [Suspect]
     Active Substance: DEXAMETHASONE
     Indication: PLASMA CELL MYELOMA
     Dates: start: 199704
  15. CYCLOPHOSPHAMIDE (CYCLOPHOSPHAMIDE) (CYCLOPHOSPHAMIDE) [Suspect]
     Active Substance: CYCLOPHOSPHAMIDE
     Indication: PLASMA CELL MYELOMA
     Dates: start: 199704
  16. CISPLATIN (CISPLATIN) (CISPLATIN) [Suspect]
     Active Substance: CISPLATIN
     Indication: PLASMA CELL MYELOMA
     Dates: start: 199704

REACTIONS (10)
  - Hepatitis B [None]
  - Pulseless electrical activity [None]
  - Hypotension [None]
  - Metabolic acidosis [None]
  - Staphylococcal bacteraemia [None]
  - Dyspnoea exertional [None]
  - Pulmonary hypertension [None]
  - Acute kidney injury [None]
  - Slow response to stimuli [None]
  - Hypoxic-ischaemic encephalopathy [None]

NARRATIVE: CASE EVENT DATE: 2012
